FAERS Safety Report 4542017-2 (Version None)
Quarter: 2004Q4

REPORT INFORMATION
  Report Type: 
  Country: None (occurrence: None)
  Receive Date: 20041230
  Receipt Date: 20041223
  Transmission Date: 20050328
  Serious: Yes (Hospitalization, Disabling)
  Sender: FDA-Public Use
  Company Number: US-MERCK-0412USA02905

PATIENT
  Age: 56 Year
  Sex: Female

DRUGS (9)
  1. FOSAMAX [Suspect]
     Indication: OSTEOPOROSIS
     Route: 048
  2. ADALAT [Concomitant]
     Route: 065
  3. ZOCOR [Concomitant]
     Route: 065
  4. LEVOTHROID [Concomitant]
     Route: 065
  5. PREMARIN [Concomitant]
     Route: 065
  6. ASPIRIN [Concomitant]
     Route: 065
  7. RANITIDINE [Concomitant]
     Route: 065
  8. CELEBREX [Concomitant]
     Route: 065
  9. VIOXX [Concomitant]
     Route: 048

REACTIONS (5)
  - APPENDICITIS [None]
  - GASTROINTESTINAL MOTILITY DISORDER [None]
  - HERNIA [None]
  - POLYP [None]
  - TRANSIENT ISCHAEMIC ATTACK [None]
